FAERS Safety Report 9219778 (Version 1)
Quarter: 2013Q1

REPORT INFORMATION
  Report Type: Spontaneous
  Country: US (occurrence: None)
  Receive Date: 20120831
  Receipt Date: 20120831
  Transmission Date: 20140127
  Serious: No
  Sender: FDA-Public Use
  Company Number: 1000030288

PATIENT
  Age: 76 Year
  Sex: Female

DRUGS (5)
  1. DALIRESP [Suspect]
     Indication: CHRONIC OBSTRUCTIVE PULMONARY DISEASE
     Route: 048
     Dates: start: 20120425
  2. CELEBREX (CELECOXIB) (CELECOXIB) [Concomitant]
  3. ADVAIR (FLUTICASONE) (FLUTICASONE) [Concomitant]
  4. SPIRIVA (TIOTROPIUM BROMIDE) (TIOTROPIUM BROMIDE) [Concomitant]
  5. ALBUTEROL (ALBUTEROL) (ALBUTEROL) [Concomitant]

REACTIONS (4)
  - Diarrhoea [None]
  - Muscle twitching [None]
  - Blood pressure increased [None]
  - Insomnia [None]
